FAERS Safety Report 6236318-X (Version None)
Quarter: 2009Q2

REPORT INFORMATION
  Report Type: 
  Country: None (occurrence: None)
  Receive Date: 20090616
  Receipt Date: 20090604
  Transmission Date: 20091009
  Serious: Yes (Death)
  Sender: FDA-Public Use
  Company Number: 2008AL011793

PATIENT
  Age: 74 Year
  Sex: Female

DRUGS (9)
  1. DIGOXIN [Suspect]
     Indication: ATRIAL FIBRILLATION
     Dosage: PO
     Route: 048
  2. ZITHROMAX [Concomitant]
  3. LASIX [Concomitant]
  4. PLAVIX [Concomitant]
  5. PREMARIN [Concomitant]
  6. XANAX [Concomitant]
  7. THYROID TAB [Concomitant]
  8. VICODIN [Concomitant]
  9. POTASSIUM CHLORIDE [Concomitant]

REACTIONS (9)
  - CARDIAC ARREST [None]
  - COUGH [None]
  - DYSPNOEA [None]
  - FATIGUE [None]
  - INJURY [None]
  - IRRITABILITY [None]
  - OROPHARYNGEAL PAIN [None]
  - THERAPEUTIC AGENT TOXICITY [None]
  - VERTIGO [None]
